FAERS Safety Report 8797250 (Version 4)
Quarter: 2013Q1

REPORT INFORMATION
  Report Type: Spontaneous
  Country: US (occurrence: US)
  Receive Date: 20120920
  Receipt Date: 20130306
  Transmission Date: 20140127
  Serious: Yes (Hospitalization, Other)
  Sender: FDA-Public Use
  Company Number: US-009507513-1003USA00576

PATIENT
  Sex: Female

DRUGS (3)
  1. FOSAMAX [Suspect]
     Indication: OSTEOPOROSIS
     Dosage: 70 MG, QW
     Route: 048
     Dates: start: 1995, end: 200803
  2. FOSAMAX [Suspect]
     Indication: OSTEOPOROSIS
     Dosage: 70 MG, QW
     Route: 048
     Dates: start: 20080320, end: 20090921
  3. SYNTHROID [Concomitant]
     Indication: HYPOTHYROIDISM
     Dosage: UNK
     Dates: start: 1993

REACTIONS (27)
  - Femur fracture [Recovered/Resolved]
  - Open reduction of fracture [Recovered/Resolved]
  - Anaemia postoperative [Recovered/Resolved]
  - Fall [Unknown]
  - Osteopenia [Unknown]
  - Osteoporosis [Unknown]
  - Low turnover osteopathy [Unknown]
  - Osteoarthritis [Unknown]
  - Vitamin D decreased [Unknown]
  - Gastric disorder [Not Recovered/Not Resolved]
  - Spinal osteoarthritis [Unknown]
  - Nausea [Unknown]
  - Hypercholesterolaemia [Unknown]
  - Oedema [Unknown]
  - Rhinitis allergic [Unknown]
  - Arthritis [Unknown]
  - Sciatica [Unknown]
  - Eczema [Unknown]
  - Dermatitis contact [Unknown]
  - Eyelid ptosis [Unknown]
  - Ptosis repair [Unknown]
  - Muscle spasms [Unknown]
  - Cerumen impaction [Unknown]
  - Irritable bowel syndrome [Unknown]
  - Gastrooesophageal reflux disease [Unknown]
  - Blood pressure increased [Unknown]
  - Glaucoma [Unknown]
